FAERS Safety Report 18692133 (Version 1)
Quarter: 2021Q1

REPORT INFORMATION
  Report Type: Spontaneous
  Country: US (occurrence: US)
  Receive Date: 20210102
  Receipt Date: 20210102
  Transmission Date: 20210419
  Serious: Yes (Other)
  Sender: FDA-Public Use
  Company Number: US-GLAXOSMITHKLINE-US2020GSK254642

PATIENT
  Age: 67 Year
  Sex: Female

DRUGS (2)
  1. FLUTICASONE. [Suspect]
     Active Substance: FLUTICASONE
     Indication: RHINITIS ALLERGIC
     Dosage: UNK
  2. ITRACONAZOLE. [Suspect]
     Active Substance: ITRACONAZOLE
     Indication: CUTANEOUS BLASTOMYCOSIS
     Dosage: 200 MG, BID
     Route: 048

REACTIONS (13)
  - Nasal oedema [Recovered/Resolved]
  - Chronic papillomatous dermatitis [Recovered/Resolved]
  - Nasal discomfort [Recovered/Resolved]
  - Rhinorrhoea [Recovered/Resolved]
  - Cutaneous blastomycosis [Recovered/Resolved]
  - Granuloma [Recovered/Resolved]
  - Oedema [Unknown]
  - Hypertension [Unknown]
  - Rhinalgia [Recovered/Resolved]
  - Erythema [Recovered/Resolved]
  - Skin lesion [Unknown]
  - Skin lesion [Recovered/Resolved]
  - Alanine aminotransferase increased [Unknown]
